FAERS Safety Report 10057133 (Version 5)
Quarter: 2015Q4

REPORT INFORMATION
  Report Type: Report from Study
  Country: TR (occurrence: TR)
  Receive Date: 20140403
  Receipt Date: 20151015
  Transmission Date: 20160304
  Serious: Yes (Death, Hospitalization)
  Sender: FDA-Public Use
  Company Number: TR-TEVA-470653USA

PATIENT
  Age: 80 Year
  Sex: Male

DRUGS (18)
  1. OBINUTUZUMAB [Suspect]
     Active Substance: OBINUTUZUMAB
     Indication: CHRONIC LYMPHOCYTIC LEUKAEMIA
     Dosage: 25 MG, ONCE DAILY (C1D1)
     Route: 042
     Dates: start: 20140304
  2. AVIL                               /00085102/ [Concomitant]
     Indication: PROPHYLAXIS
     Route: 042
     Dates: start: 20140304, end: 20140304
  3. UROGRAFIN [Concomitant]
     Active Substance: DIATRIZOATE MEGLUMINE\DIATRIZOATE SODIUM
     Indication: PRODUCT USED FOR UNKNOWN INDICATION
     Dosage: 50 ML, (76% SUPPLEMENT)  TOTAL DOSE
     Route: 048
     Dates: start: 20140205, end: 20140205
  4. ALLOPURINOL. [Concomitant]
     Active Substance: ALLOPURINOL
     Indication: PRODUCT USED FOR UNKNOWN INDICATION
     Route: 048
     Dates: start: 20140304, end: 20140308
  5. BENDAMUSTINE HYDROCHLORIDE [Suspect]
     Active Substance: BENDAMUSTINE HYDROCHLORIDE
     Indication: CHRONIC LYMPHOCYTIC LEUKAEMIA
     Dosage: 90 MG/M2, ONCE DAILY (C1D1)
     Route: 042
     Dates: start: 20140304
  6. BENDAMUSTINE HYDROCHLORIDE [Suspect]
     Active Substance: BENDAMUSTINE HYDROCHLORIDE
     Dosage: 90 MG/M2, ONCE DAILY  (C1D2)
     Route: 042
     Dates: start: 20140305
  7. GRANISETRON HYDROCHLORIDE. [Concomitant]
     Active Substance: GRANISETRON HYDROCHLORIDE
     Indication: PRODUCT USED FOR UNKNOWN INDICATION
     Route: 048
     Dates: start: 20140309, end: 20140309
  8. GRANISETRON                        /01178102/ [Concomitant]
     Active Substance: GRANISETRON
     Dates: start: 20140305, end: 20140305
  9. DEKORT                             /00016001/ [Concomitant]
     Indication: PROPHYLAXIS
     Route: 042
     Dates: start: 20140304, end: 20140304
  10. DEKORT                             /00016001/ [Concomitant]
     Route: 042
     Dates: start: 20140304, end: 20140304
  11. OMNIPAQUE [Concomitant]
     Active Substance: IOHEXOL
     Indication: PRODUCT USED FOR UNKNOWN INDICATION
     Route: 042
     Dates: start: 20140205, end: 20140205
  12. OBINUTUZUMAB [Suspect]
     Active Substance: OBINUTUZUMAB
     Dosage: 975 MG, CYCLIC (C1D2)
     Route: 042
     Dates: start: 20140305
  13. GRANISETRON HYDROCHLORIDE. [Concomitant]
     Active Substance: GRANISETRON HYDROCHLORIDE
     Route: 048
     Dates: start: 20140304, end: 20140308
  14. AVIL                               /00085102/ [Concomitant]
     Route: 042
     Dates: start: 20140305, end: 20140305
  15. GRANISETRON                        /01178102/ [Concomitant]
     Active Substance: GRANISETRON
     Indication: PROPHYLAXIS
     Dates: start: 20140304, end: 20140304
  16. GRANISETRON                        /01178102/ [Concomitant]
     Active Substance: GRANISETRON
     Route: 048
     Dates: start: 20140304, end: 20140308
  17. DEKORT                             /00016001/ [Concomitant]
     Route: 042
     Dates: start: 20140305, end: 20140305
  18. AVIL                               /00085102/ [Concomitant]
     Route: 042
     Dates: start: 20140304, end: 20140304

REACTIONS (2)
  - Tumour lysis syndrome [Fatal]
  - Febrile neutropenia [Fatal]

NARRATIVE: CASE EVENT DATE: 20140310
